FAERS Safety Report 10776756 (Version 1)
Quarter: 2015Q1

REPORT INFORMATION
  Report Type: Spontaneous
  Country: US (occurrence: None)
  Receive Date: 20150205
  Receipt Date: 20150205
  Transmission Date: 20150721
  Serious: No
  Sender: FDA-Public Use
  Company Number: None

PATIENT
  Age: 48 Year
  Sex: Male
  Weight: 158.76 kg

DRUGS (2)
  1. GABAPENTIN. [Suspect]
     Active Substance: GABAPENTIN
     Indication: VIITH NERVE PARALYSIS
     Dosage: 3 PILLS, THREE TIMES DAILY, TAKEN BY MOUTH
     Route: 048
     Dates: start: 20150127
  2. GABAPENTIN. [Suspect]
     Active Substance: GABAPENTIN
     Indication: POST HERPETIC NEURALGIA
     Dosage: 3 PILLS, THREE TIMES DAILY, TAKEN BY MOUTH
     Route: 048
     Dates: start: 20150127

REACTIONS (4)
  - Drug effect incomplete [None]
  - Product substitution issue [None]
  - Drug effect decreased [None]
  - Product quality issue [None]

NARRATIVE: CASE EVENT DATE: 20150127
